FAERS Safety Report 5532966-0 (Version None)
Quarter: 2007Q4

REPORT INFORMATION
  Report Type: 
  Country: None (occurrence: None)
  Receive Date: 20071129
  Receipt Date: 20071129
  Transmission Date: 20080405
  Serious: Yes (Hospitalization)
  Sender: FDA-Public Use
  Company Number: None

PATIENT
  Age: 43 Year
  Sex: Female
  Weight: 86 kg

DRUGS (5)
  1. IRESSA [Suspect]
     Indication: BREAST CANCER
     Dosage: 250MG  DAILY  PO
     Route: 048
     Dates: start: 20050630, end: 20071106
  2. TAXOTERE [Suspect]
     Indication: BREAST CANCER
     Dosage: 86MG + 516MG  EVERY 4 WEEKS  IV DRIP
     Route: 041
     Dates: start: 20050630, end: 20071106
  3. PEPCID [Concomitant]
  4. TORADOL [Concomitant]
  5. HERCEPTIN [Suspect]
     Dosage: 516MG

REACTIONS (7)
  - CHEST PAIN [None]
  - DYSPNOEA [None]
  - HAEMATOCRIT DECREASED [None]
  - HAEMOGLOBIN DECREASED [None]
  - LIPASE INCREASED [None]
  - ULTRASOUND ABDOMEN ABNORMAL [None]
  - WHITE BLOOD CELL COUNT DECREASED [None]
